FAERS Safety Report 12236355 (Version 1)
Quarter: 2016Q2

REPORT INFORMATION
  Report Type: Spontaneous
  Country: KR (occurrence: KR)
  Receive Date: 20160404
  Receipt Date: 20160404
  Transmission Date: 20160815
  Serious: Yes (Hospitalization)
  Sender: FDA-Public Use
  Company Number: KR-AMGEN-KORCT2016041572

PATIENT
  Age: 69 Year
  Sex: Male
  Weight: 57 kg

DRUGS (13)
  1. RITUXIMAB [Concomitant]
     Active Substance: RITUXIMAB
     Dosage: 530 MG, UNK
     Route: 042
     Dates: start: 20150925, end: 20150925
  2. CYCLOPHOSPHAMIDE. [Concomitant]
     Active Substance: CYCLOPHOSPHAMIDE
     Dosage: 1057 MG, UNK
     Route: 042
     Dates: start: 20150925, end: 20150925
  3. LENOGRASTIM [Concomitant]
     Active Substance: LENOGRASTIM
     Indication: NEUTROPENIA
     Dosage: 250 MUG, UNK
     Route: 058
     Dates: start: 20150911, end: 20150912
  4. RITUXIMAB [Concomitant]
     Active Substance: RITUXIMAB
     Dosage: 590 MG, UNK
     Route: 042
     Dates: start: 20150903, end: 20150903
  5. G-LASTA [Suspect]
     Active Substance: PEGFILGRASTIM
     Indication: FEBRILE NEUTROPENIA
     Dosage: 6 MG, 1X/3WEEKS
     Route: 058
     Dates: start: 20150904
  6. VINCRISTINE [Suspect]
     Active Substance: VINCRISTINE
     Dosage: 2 MG, UNK
     Route: 042
     Dates: start: 20150925, end: 20150925
  7. PREDNISOLONE. [Concomitant]
     Active Substance: PREDNISOLONE
     Dosage: 100 MG, UNK
     Route: 048
     Dates: start: 20150903, end: 20150908
  8. PREDNISOLONE. [Concomitant]
     Active Substance: PREDNISOLONE
     Dosage: 100 MG, UNK
     Route: 048
     Dates: start: 20150925, end: 20150929
  9. VINCRISTINE [Suspect]
     Active Substance: VINCRISTINE
     Indication: PRODUCT USED FOR UNKNOWN INDICATION
     Dosage: 2 MG, UNK
     Route: 042
     Dates: start: 20150903, end: 20150903
  10. G-LASTA [Suspect]
     Active Substance: PEGFILGRASTIM
     Dosage: 6 MG, 1X/3WEEKS
     Route: 058
     Dates: start: 20150926
  11. DOXORUBICIN [Concomitant]
     Active Substance: DOXORUBICIN
     Dosage: 590 MG, UNK
     Route: 042
     Dates: start: 20150903, end: 20150903
  12. DOXORUBICIN [Concomitant]
     Active Substance: DOXORUBICIN
     Dosage: 70 MG, UNK
     Route: 042
     Dates: start: 20150925, end: 20150925
  13. CYCLOPHOSPHAMIDE. [Concomitant]
     Active Substance: CYCLOPHOSPHAMIDE
     Dosage: 1185 MG, UNK
     Route: 042
     Dates: start: 20150903, end: 20150903

REACTIONS (2)
  - Neutropenia [Recovered/Resolved]
  - Neutropenia [Recovered/Resolved]

NARRATIVE: CASE EVENT DATE: 20150911
